FAERS Safety Report 4687634-4 (Version None)
Quarter: 2005Q2

REPORT INFORMATION
  Report Type: 
  Country: None (occurrence: None)
  Receive Date: 20050609
  Receipt Date: 20050609
  Transmission Date: 20051028
  Serious: No
  Sender: FDA-Public Use
  Company Number: None

PATIENT
  Sex: Female
  Weight: 90.7194 kg

DRUGS (2)
  1. AREDIA [Suspect]
     Indication: MULTIPLE MYELOMA
     Dosage: DURATION:  AREDIA - COUPLE OF YRS.
  2. ZOMETA [Suspect]
     Indication: MULTIPLE MYELOMA
     Dosage: DURATION: ZOMETA - COUPLE OF YRS.

REACTIONS (5)
  - INFECTION [None]
  - NECROBIOSIS [None]
  - NECROSIS [None]
  - PAIN IN JAW [None]
  - WOUND SECRETION [None]
